FAERS Safety Report 18881468 (Version 1)
Quarter: 2021Q1

REPORT INFORMATION
  Report Type: Spontaneous
  Country: CN (occurrence: CN)
  Receive Date: 20210211
  Receipt Date: 20210211
  Transmission Date: 20210420
  Serious: Yes (Hospitalization, Other)
  Sender: FDA-Public Use
  Company Number: CN-ASTRAZENECA-2021A026555

PATIENT
  Age: 82 Year
  Sex: Male
  Weight: 80 kg

DRUGS (2)
  1. LYNPARZA [Suspect]
     Active Substance: OLAPARIB
     Indication: PROSTATE CANCER
     Route: 048
  2. ALBUMIN [Concomitant]
     Active Substance: ALBUMIN HUMAN

REACTIONS (7)
  - Cardiac failure [Recovering/Resolving]
  - Prostatic specific antigen increased [Not Recovered/Not Resolved]
  - Haemoglobin decreased [Recovering/Resolving]
  - Blood electrolytes decreased [Recovering/Resolving]
  - Diarrhoea [Recovering/Resolving]
  - Rash [Recovering/Resolving]
  - Red blood cell count decreased [Recovering/Resolving]
